FAERS Safety Report 7078299-5 (Version None)
Quarter: 2010Q4

REPORT INFORMATION
  Report Type: 
  Country: None (occurrence: None)
  Receive Date: 20101102
  Receipt Date: 20100716
  Transmission Date: 20110411
  Serious: Yes (Other)
  Sender: FDA-Public Use
  Company Number: US-BAYER-200938606NA

PATIENT
  Age: 27 Year
  Sex: Female
  Weight: 66 kg

DRUGS (7)
  1. YAZ [Suspect]
     Indication: CONTRACEPTION
     Route: 048
     Dates: start: 20070323, end: 20071231
  2. YASMIN [Suspect]
     Indication: CONTRACEPTION
  3. ACYCLOVIR [Concomitant]
     Indication: PRODUCT USED FOR UNKNOWN INDICATION
     Route: 048
  4. BETA-VAL [Concomitant]
     Indication: PSORIASIS
     Dosage: 0.1%
  5. LOW-OGESTREL [Concomitant]
     Indication: PRODUCT USED FOR UNKNOWN INDICATION
     Route: 048
  6. PRILOSEC [Concomitant]
     Indication: PRODUCT USED FOR UNKNOWN INDICATION
  7. VALTREX [Concomitant]
     Indication: PRODUCT USED FOR UNKNOWN INDICATION

REACTIONS (5)
  - ARRHYTHMIA [None]
  - CHEST DISCOMFORT [None]
  - DYSPNOEA EXERTIONAL [None]
  - PALPITATIONS [None]
  - SYNCOPE [None]
